FAERS Safety Report 5351681-X (Version None)
Quarter: 2007Q2

REPORT INFORMATION
  Report Type: 
  Country: None (occurrence: None)
  Receive Date: 20070518
  Receipt Date: 20070124
  Transmission Date: 20071010
  Serious: No
  Sender: FDA-Public Use
  Company Number: TPA2007A00204

PATIENT
  Age: 85 Year
  Sex: Female

DRUGS (3)
  1. ROZEREM [Suspect]
     Dosage: PER ORAL
     Route: 048
  2. GLUCOPHAGE [Concomitant]
  3. TEMAZEPAM [Concomitant]

REACTIONS (1)
  - DRUG INEFFECTIVE [None]
